FAERS Safety Report 8885330 (Version 1)
Quarter: 2012Q4

REPORT INFORMATION
  Report Type: 
  Country: ES (occurrence: ES)
  Receive Date: 20121105
  Receipt Date: 20121105
  Transmission Date: 20130627
  Serious: Yes (Hospitalization)
  Sender: FDA-Public Use
  Company Number: ES-SANOFI-AVENTIS-2012SA078344

PATIENT
  Age: 56 Year
  Sex: Male

DRUGS (4)
  1. CLEXANE [Suspect]
     Indication: DEEP VEIN THROMBOSIS
     Route: 058
     Dates: start: 20120415, end: 20120418
  2. PANTOPRAZOLE [Suspect]
     Indication: PROPHYLAXIS
     Route: 048
     Dates: start: 20120415, end: 20120418
  3. PARACETAMOL [Suspect]
     Indication: PAIN
     Route: 048
     Dates: start: 20120415, end: 20120418
  4. METAMIZOLE [Suspect]
     Indication: PAIN
     Route: 048
     Dates: start: 20120415, end: 20120418

REACTIONS (1)
  - Hepatitis [Recovered/Resolved]
